FAERS Safety Report 22090341 (Version 1)
Quarter: 2023Q1

REPORT INFORMATION
  Report Type: Spontaneous
  Country: CZ (occurrence: CZ)
  Receive Date: 20230313
  Receipt Date: 20230313
  Transmission Date: 20230418
  Serious: Yes (Hospitalization)
  Sender: FDA-Public Use
  Company Number: CZ-BRISTOL-MYERS SQUIBB COMPANY-2023-029220

PATIENT
  Age: 71 Year
  Sex: Female

DRUGS (4)
  1. CARBOPLATIN [Suspect]
     Active Substance: CARBOPLATIN
     Indication: Squamous cell carcinoma of lung
     Route: 065
     Dates: start: 20210302
  2. PACLITAXEL [Suspect]
     Active Substance: PACLITAXEL
     Indication: Squamous cell carcinoma of lung
     Route: 065
     Dates: start: 20210302
  3. YERVOY [Suspect]
     Active Substance: IPILIMUMAB
     Indication: Squamous cell carcinoma of lung
     Route: 065
     Dates: start: 20210302
  4. OPDIVO [Suspect]
     Active Substance: NIVOLUMAB
     Indication: Squamous cell carcinoma of lung
     Dosage: DOSE : UNAVAILABLE; FREQ : UNAVAILABLE
     Route: 065
     Dates: start: 20210302

REACTIONS (2)
  - Autoimmune dermatitis [None]
  - Weight increased [None]

NARRATIVE: CASE EVENT DATE: 20220901
